FAERS Safety Report 6515698-1 (Version None)
Quarter: 2009Q4

REPORT INFORMATION
  Report Type: 
  Country: None (occurrence: None)
  Receive Date: 20091223
  Receipt Date: 20091217
  Transmission Date: 20100525
  Serious: Yes (Other)
  Sender: FDA-Public Use
  Company Number: FR-ASTRAZENECA-2009SE32898

PATIENT
  Age: 75 Year
  Sex: Male

DRUGS (4)
  1. CRESTOR [Suspect]
     Route: 048
     Dates: start: 20070101
  2. KARDEGIC [Concomitant]
  3. PLAVIX [Concomitant]
  4. XATRAL [Concomitant]

REACTIONS (1)
  - HAEMOLYTIC ANAEMIA [None]
